FAERS Safety Report 7250624-1 (Version None)
Quarter: 2011Q1

REPORT INFORMATION
  Report Type: 
  Country: None (occurrence: None)
  Receive Date: 20110128
  Receipt Date: 20110124
  Transmission Date: 20110831
  Serious: Yes (Death, Hospitalization, Other)
  Sender: FDA-Public Use
  Company Number: PHHY2011US04375

PATIENT
  Age: 44 Year
  Sex: Male

DRUGS (9)
  1. GABAPENTIN [Concomitant]
     Dosage: 800 MG, TID
     Route: 048
  2. LEVOTHYROXINE SODIUM [Concomitant]
     Dosage: 300 UG, ONCE/SINGLE
     Route: 048
  3. PAROXETINE HCL [Suspect]
     Dosage: 10 MG, ONCE/SINGLE
     Route: 048
  4. LEVOTHYROXINE SODIUM [Concomitant]
     Route: 042
  5. CLONAZEPAM [Suspect]
     Dosage: 1 MG, TID
     Route: 048
  6. OMEPRAZOLE [Concomitant]
     Dosage: 15 MG, ONCE/SINGLE
     Route: 048
  7. OLANZAPINE [Suspect]
     Dosage: 20 MG, QD
     Route: 048
  8. QUETIAPINE [Suspect]
     Dosage: 100 MG, QD
     Route: 048
  9. VALSARTAN [Concomitant]
     Dosage: 80 MG, ONCE/SINGLE
     Route: 048

REACTIONS (17)
  - BLOOD CREATINE PHOSPHOKINASE INCREASED [None]
  - BLOOD LACTIC ACID INCREASED [None]
  - BLOOD CALCIUM DECREASED [None]
  - COMA [None]
  - HYPONATRAEMIA [None]
  - BLOOD CREATINE PHOSPHOKINASE MB INCREASED [None]
  - ISCHAEMIC CEREBRAL INFARCTION [None]
  - CARDIAC ARREST [None]
  - HYPOTHERMIA [None]
  - PULSE ABSENT [None]
  - ELECTROCARDIOGRAM ST SEGMENT DEPRESSION [None]
  - BLOOD THYROID STIMULATING HORMONE INCREASED [None]
  - UNRESPONSIVE TO STIMULI [None]
  - BLOOD GLUCOSE INCREASED [None]
  - HYPOTENSION [None]
  - BLOOD CHLORIDE DECREASED [None]
  - ELECTROCARDIOGRAM ST-T SEGMENT ABNORMAL [None]
